FAERS Safety Report 21944927 (Version 1)
Quarter: 2023Q1

REPORT INFORMATION
  Report Type: Report from Study
  Country: US (occurrence: US)
  Receive Date: 20230202
  Receipt Date: 20230202
  Transmission Date: 20230417
  Serious: Yes (Hospitalization)
  Sender: FDA-Public Use
  Company Number: US-GILEAD-2023-0615024

PATIENT
  Sex: Female

DRUGS (1)
  1. AZTREONAM LYSINE [Suspect]
     Active Substance: AZTREONAM LYSINE
     Indication: Cystic fibrosis
     Dosage: (75 MG) VIA ALTERA NEBULIZER THREE TIMES A DAY FOR 28 DAYS EVERY OTHER MONTH
     Route: 055
     Dates: start: 201912

REACTIONS (1)
  - Surgery [Unknown]
